FAERS Safety Report 5712778-5 (Version None)
Quarter: 2008Q2

REPORT INFORMATION
  Report Type: 
  Country: None (occurrence: None)
  Receive Date: 20080421
  Receipt Date: 20080421
  Transmission Date: 20081010
  Serious: Yes (Other)
  Sender: FDA-Public Use
  Company Number: None

PATIENT
  Age: 25 Year
  Sex: Female
  Weight: 61.2356 kg

DRUGS (2)
  1. BUPROPION HCL [Suspect]
     Indication: BIPOLAR DISORDER
     Dosage: 75 MG 2 TIMES A DAY PO
     Route: 048
     Dates: start: 20080326, end: 20080418
  2. BUPROPION HCL [Suspect]
     Indication: DEPRESSION
     Dosage: 75 MG 2 TIMES A DAY PO
     Route: 048
     Dates: start: 20080326, end: 20080418

REACTIONS (8)
  - DIZZINESS [None]
  - DRUG EFFECT DECREASED [None]
  - INFLUENZA [None]
  - NASOPHARYNGITIS [None]
  - NAUSEA [None]
  - ORAL INTAKE REDUCED [None]
  - THERAPEUTIC RESPONSE UNEXPECTED WITH DRUG SUBSTITUTION [None]
  - WEIGHT DECREASED [None]
